FAERS Safety Report 25100282 (Version 1)
Quarter: 2025Q1

REPORT INFORMATION
  Report Type: Spontaneous
  Country: US (occurrence: None)
  Receive Date: 20250319
  Receipt Date: 20250319
  Transmission Date: 20250409
  Serious: Yes (Other)
  Sender: FDA-CTU
  Company Number: None

PATIENT
  Age: 8 Year
  Sex: Male
  Weight: 47.7 kg

DRUGS (1)
  1. OSELTAMIVIR [Suspect]
     Active Substance: OSELTAMIVIR
     Indication: Influenza A virus test positive
     Dates: start: 20250315, end: 20250315

REACTIONS (1)
  - Hallucination [None]

NARRATIVE: CASE EVENT DATE: 20250316
